FAERS Safety Report 7767879-7 (Version None)
Quarter: 2011Q3

REPORT INFORMATION
  Report Type: 
  Country: None (occurrence: None)
  Receive Date: 20110922
  Receipt Date: 20110615
  Transmission Date: 20111222
  Serious: No
  Sender: FDA-Public Use
  Company Number: US-ASTRAZENECA-2010SE00792

PATIENT
  Age: 66 Year
  Sex: Female

DRUGS (10)
  1. DURAGESIC-100 [Concomitant]
  2. FLEXERIL [Concomitant]
  3. LIPITOR [Concomitant]
  4. PROCARDIA XL [Concomitant]
  5. NEURONTIN [Concomitant]
  6. DIOVAN [Concomitant]
  7. SEROQUEL [Suspect]
     Indication: DEPRESSION
     Route: 048
     Dates: start: 20090101
  8. SEROQUEL [Suspect]
     Indication: SLEEP DISORDER
     Route: 048
     Dates: start: 20090101
  9. GLUCOTROL XL [Concomitant]
  10. ACIPHEX [Concomitant]

REACTIONS (6)
  - DRUG PRESCRIBING ERROR [None]
  - INFLUENZA [None]
  - CHEST PAIN [None]
  - DRUG DOSE OMISSION [None]
  - INSOMNIA [None]
  - THERAPEUTIC RESPONSE UNEXPECTED [None]
